FAERS Safety Report 6518910-8 (Version None)
Quarter: 2009Q4

REPORT INFORMATION
  Report Type: 
  Country: None (occurrence: None)
  Receive Date: 20091218
  Receipt Date: 20091202
  Transmission Date: 20100525
  Serious: Yes (Hospitalization)
  Sender: FDA-Public Use
  Company Number: 2008001804

PATIENT
  Age: 63 Year
  Sex: Male
  Weight: 88 kg

DRUGS (9)
  1. ERLOTINIB HYDROCHLORIDE [Suspect]
     Indication: LUNG SQUAMOUS CELL CARCINOMA STAGE UNSPECIFIED
     Dosage: (150 MG,QD),ORAL
     Route: 048
     Dates: start: 20080626, end: 20080717
  2. ALLOID G [Concomitant]
  3. LOXONIN (LOXOPROFEN SODIUM) [Concomitant]
  4. MUCOSTA (REBAMIPIDE) [Concomitant]
  5. PURSENNID (SENNA LEAF) [Concomitant]
  6. MUCODYNE (CARBOCISTEINE) [Concomitant]
  7. MUCOSOLVAN (AMBROXOL HYDROCHLORIDE) [Concomitant]
  8. CERNILTON (CERNILTON) [Concomitant]
  9. HARNAL (TAMSULOSIN HYDROCHLORIDE) [Concomitant]

REACTIONS (1)
  - PNEUMOCYSTIS JIROVECI PNEUMONIA [None]
